FAERS Safety Report 7528861-8 (Version None)
Quarter: 2011Q2

REPORT INFORMATION
  Report Type: 
  Country: None (occurrence: None)
  Receive Date: 20110607
  Receipt Date: 20101116
  Transmission Date: 20111010
  Serious: No
  Sender: FDA-Public Use
  Company Number: US-ASTRAZENECA-2010SE59347

PATIENT
  Sex: Female

DRUGS (6)
  1. FIBROMYALGIA MEDICATION [Concomitant]
     Dosage: UNKNOWN
  2. PRILOSEC OTC [Suspect]
     Route: 048
     Dates: end: 20101115
  3. CHOLESTEROL- AND TRIGLYCERIDE REDUCERS [Concomitant]
     Dosage: UNKNOWN
  4. THYROID THERAPY [Concomitant]
     Dosage: UNKNOWN
  5. RESLTESS LEG SYNDROME MEDICATION [Concomitant]
     Dosage: UNKNOWN
  6. HERBS [Concomitant]
     Dosage: UNKNOWN

REACTIONS (9)
  - MUSCLE CONTRACTIONS INVOLUNTARY [None]
  - ANGINA PECTORIS [None]
  - BREAST INFLAMMATION [None]
  - INAPPROPRIATE SCHEDULE OF DRUG ADMINISTRATION [None]
  - CHEST DISCOMFORT [None]
  - MUSCLE SPASMS [None]
  - FEELING COLD [None]
  - FEELING HOT [None]
  - GASTROINTESTINAL SOUNDS ABNORMAL [None]
